FAERS Safety Report 9509095 (Version 1)
Quarter: 2013Q3

REPORT INFORMATION
  Report Type: Spontaneous
  Country: US (occurrence: US)
  Receive Date: 20130909
  Receipt Date: 20130909
  Transmission Date: 20140515
  Serious: No
  Sender: FDA-Public Use
  Company Number: US-BRISTOL-MYERS SQUIBB COMPANY-19043207

PATIENT
  Age: 22 Year
  Sex: Male

DRUGS (7)
  1. ABILIFY [Suspect]
     Indication: DEPRESSION
     Dates: start: 20130622
  2. MVI [Concomitant]
  3. WELLBUTRIN [Concomitant]
  4. EFFEXOR [Concomitant]
  5. PEPCID [Concomitant]
  6. PROZAC [Concomitant]
  7. NICOTINE [Concomitant]
     Dosage: PATCH.

REACTIONS (1)
  - Rash [Unknown]
